FAERS Safety Report 18598000 (Version 3)
Quarter: 2021Q1

REPORT INFORMATION
  Report Type: Report from Study
  Country: None (occurrence: PR)
  Receive Date: 20201210
  Receipt Date: 20210121
  Transmission Date: 20210419
  Serious: Yes (Other)
  Sender: FDA-Public Use
  Company Number: PR-ABBVIE-20K-131-3681943-00

PATIENT
  Age: 70 Year
  Sex: Male

DRUGS (2)
  1. VENCLEXTA [Suspect]
     Active Substance: VENETOCLAX
     Route: 048
  2. VENCLEXTA [Suspect]
     Active Substance: VENETOCLAX
     Indication: CHRONIC LYMPHOCYTIC LEUKAEMIA
     Route: 048
     Dates: start: 20200327

REACTIONS (5)
  - Atrial fibrillation [Unknown]
  - Cardiac murmur [Unknown]
  - Diabetes mellitus inadequate control [Unknown]
  - Toothache [Unknown]
  - Anxiety [Unknown]
